FAERS Safety Report 19692718 (Version 1)
Quarter: 2021Q3

REPORT INFORMATION
  Report Type: Spontaneous
  Country: US (occurrence: US)
  Receive Date: 20210812
  Receipt Date: 20210812
  Transmission Date: 20211014
  Serious: Yes (Hospitalization)
  Sender: FDA-Public Use
  Company Number: US-ALLERGAN-2127601US

PATIENT
  Sex: Female
  Weight: 64.4 kg

DRUGS (4)
  1. BOTOX [Suspect]
     Active Substance: ONABOTULINUMTOXINA
     Indication: MIGRAINE
     Dosage: UNK, SINGLE
     Dates: start: 202012, end: 202012
  2. UNSPECIFIED BLOOD PRESSURE MEDICATION [Concomitant]
     Active Substance: UNSPECIFIED INGREDIENT
     Indication: BLOOD PRESSURE ABNORMAL
  3. SYNTHROID [Concomitant]
     Active Substance: LEVOTHYROXINE SODIUM
     Indication: THYROID DISORDER
  4. UNSPECIFIED CHOLESTEROL MEDICATION [Concomitant]
     Active Substance: UNSPECIFIED INGREDIENT
     Indication: BLOOD CHOLESTEROL ABNORMAL

REACTIONS (4)
  - Eyelid ptosis [Recovering/Resolving]
  - Facial paresis [Recovering/Resolving]
  - Bronchitis [Unknown]
  - Drug ineffective [Unknown]

NARRATIVE: CASE EVENT DATE: 202102
